FAERS Safety Report 17662212 (Version 2)
Quarter: 2020Q2

REPORT INFORMATION
  Report Type: Spontaneous
  Country: US (occurrence: US)
  Receive Date: 20200413
  Receipt Date: 20200413
  Transmission Date: 20200713
  Serious: Yes (Other)
  Sender: FDA-Public Use
  Company Number: NVSC2020US091214

PATIENT
  Sex: Male

DRUGS (6)
  1. EPLERENONE. [Suspect]
     Active Substance: EPLERENONE
     Indication: PRIMARY HYPERALDOSTERONISM
     Dosage: 1 DF, BID
     Route: 048
  2. CARBAMAZEPINE. [Suspect]
     Active Substance: CARBAMAZEPINE
     Indication: PRODUCT USED FOR UNKNOWN INDICATION
     Dosage: UNK
     Route: 065
  3. LOSARTAN POTASSIUM. [Suspect]
     Active Substance: LOSARTAN POTASSIUM
     Indication: PRODUCT USED FOR UNKNOWN INDICATION
     Dosage: UNK
     Route: 065
  4. EPLERENONE. [Suspect]
     Active Substance: EPLERENONE
     Indication: ENDOCRINE HYPERTENSION
  5. EPLERENONE. [Suspect]
     Active Substance: EPLERENONE
     Indication: ADRENAL DISORDER
  6. HYDROCHLOORTHIAZIDE [Suspect]
     Active Substance: HYDROCHLOROTHIAZIDE
     Indication: PRODUCT USED FOR UNKNOWN INDICATION
     Dosage: UNK
     Route: 065

REACTIONS (5)
  - Hyponatraemia [Unknown]
  - Hypertension [Recovered/Resolved]
  - Hypotension [Unknown]
  - Hyperkalaemia [Recovered/Resolved]
  - Primary hyperaldosteronism [Unknown]
